FAERS Safety Report 5188367-0 (Version None)
Quarter: 2006Q4

REPORT INFORMATION
  Report Type: 
  Country: None (occurrence: None)
  Receive Date: 20061221
  Receipt Date: 20061212
  Transmission Date: 20070319
  Serious: Yes (Hospitalization)
  Sender: FDA-Public Use
  Company Number: FR-GILEAD-2006-0010826

PATIENT
  Sex: Male
  Weight: 50 kg

DRUGS (10)
  1. VIREAD [Suspect]
     Indication: HIV INFECTION
     Route: 048
     Dates: start: 20031215, end: 20061117
  2. KALETRA [Concomitant]
     Indication: HIV INFECTION
     Route: 048
     Dates: start: 20031215, end: 20061030
  3. KALETRA [Concomitant]
     Route: 048
     Dates: start: 20061031
  4. ZIAGEN [Concomitant]
     Route: 048
     Dates: start: 20031201
  5. VIRAFERONPEG [Concomitant]
     Indication: HEPATITIS C
  6. CACIT D3 [Concomitant]
  7. ACUPAN [Concomitant]
  8. ACETAMINOPHEN [Concomitant]
  9. OMEPRAZOLE [Concomitant]
  10. AVLOCARDYL [Concomitant]

REACTIONS (8)
  - ANAEMIA [None]
  - BONE PAIN [None]
  - GAMMA-GLUTAMYLTRANSFERASE INCREASED [None]
  - LIPASE INCREASED [None]
  - MUSCLE ATROPHY [None]
  - MYALGIA [None]
  - RENAL FAILURE [None]
  - RENAL TUBULAR DISORDER [None]
